FAERS Safety Report 9397179 (Version 1)
Quarter: 2013Q3

REPORT INFORMATION
  Report Type: Spontaneous
  Country: US (occurrence: None)
  Receive Date: 20130710
  Receipt Date: 20130710
  Transmission Date: 20140515
  Serious: Yes (Hospitalization, Disabling)
  Sender: FDA-Public Use
  Company Number: None

PATIENT
  Age: 43 None
  Sex: Female

DRUGS (9)
  1. INVEGA [Suspect]
     Indication: BIPOLAR I DISORDER
     Dosage: ONE 9 MG INVEGA A DAY , 100 MG LAMICTAL
     Route: 048
     Dates: start: 20050110, end: 20120101
  2. LAMICTAL [Suspect]
     Route: 048
  3. CLONAZEPAM [Concomitant]
  4. WELLBUTRIN [Concomitant]
  5. NORVASC [Concomitant]
  6. LIPITOR [Concomitant]
  7. METFORMIN [Concomitant]
  8. LUNESTA [Concomitant]
  9. ONE A DAY MULTIVITAMIN [Concomitant]

REACTIONS (9)
  - Weight increased [None]
  - Fatigue [None]
  - Diabetes mellitus [None]
  - Blood pressure increased [None]
  - Blood cholesterol increased [None]
  - Visual impairment [None]
  - Thirst [None]
  - Malaise [None]
  - Sleep apnoea syndrome [None]
